FAERS Safety Report 20520796 (Version 2)
Quarter: 2022Q1

REPORT INFORMATION
  Report Type: Spontaneous
  Country: CN (occurrence: CN)
  Receive Date: 20220225
  Receipt Date: 20220304
  Transmission Date: 20220424
  Serious: Yes (Other)
  Sender: FDA-Public Use
  Company Number: CN-MLMSERVICE-20220217-3380868-1

PATIENT
  Age: 14 Year
  Sex: Male

DRUGS (7)
  1. DEXAMETHASONE [Suspect]
     Active Substance: DEXAMETHASONE
     Indication: Cutaneous T-cell lymphoma
     Dosage: 20 MG D1-5/21 D CYCLE
     Route: 065
     Dates: start: 201709
  2. TUCIDINOSTAT [Suspect]
     Active Substance: TUCIDINOSTAT
     Indication: Cutaneous T-cell lymphoma
     Dosage: 30 MG BIW (TWICE A WEEK), 21 D CYCLE
     Route: 065
     Dates: start: 201709
  3. TUCIDINOSTAT [Suspect]
     Active Substance: TUCIDINOSTAT
     Dosage: 20 MG/BIW AS MAINTENANCE THERAPY FOR 1 YEAR
     Route: 065
     Dates: start: 2017
  4. CYCLOPHOSPHAMIDE [Suspect]
     Active Substance: CYCLOPHOSPHAMIDE
     Indication: Cutaneous T-cell lymphoma
     Dosage: 1100 D1/21 D CYCLE
     Route: 065
     Dates: start: 201709
  5. DOXORUBICIN [Suspect]
     Active Substance: DOXORUBICIN
     Indication: Cutaneous T-cell lymphoma
     Dosage: 70 MG D1/21 D CYCLE
     Route: 065
     Dates: start: 201709
  6. VINCRISTINE [Suspect]
     Active Substance: VINCRISTINE
     Indication: Cutaneous T-cell lymphoma
     Dosage: 2 MG D1/21 D CYCLE
     Route: 065
     Dates: start: 201709
  7. ETOPOSIDE [Suspect]
     Active Substance: ETOPOSIDE
     Indication: Cutaneous T-cell lymphoma
     Dosage: 100 MG/D1-5, IN A 21 DAYS CYCLE
     Route: 065
     Dates: start: 201709

REACTIONS (2)
  - Myelosuppression [Recovered/Resolved]
  - Haematotoxicity [Recovered/Resolved]

NARRATIVE: CASE EVENT DATE: 20170101
